FAERS Safety Report 5939778-4 (Version None)
Quarter: 2008Q4

REPORT INFORMATION
  Report Type: 
  Country: None (occurrence: None)
  Receive Date: 20081031
  Receipt Date: 20081031
  Transmission Date: 20090506
  Serious: No
  Sender: FDA-Public Use
  Company Number: None

PATIENT
  Age: 55 Year
  Sex: Male
  Weight: 72.5755 kg

DRUGS (1)
  1. BENADRYL [Suspect]
     Indication: SLEEP DISORDER
     Dosage: 2 TABLETS AT NIGHT PO SEVERAL YEARS
     Route: 048

REACTIONS (2)
  - BACK DISORDER [None]
  - BACK PAIN [None]
